FAERS Safety Report 12797558 (Version 1)
Quarter: 2016Q3

REPORT INFORMATION
  Report Type: Spontaneous
  Country: US (occurrence: US)
  Receive Date: 20160929
  Receipt Date: 20160929
  Transmission Date: 20161109
  Serious: No
  Sender: FDA-Public Use
  Company Number: None

PATIENT
  Age: 52 Year
  Sex: Male

DRUGS (3)
  1. DAKLINZA [Concomitant]
     Active Substance: DACLATASVIR
  2. SOVALDI [Concomitant]
     Active Substance: SOFOSBUVIR
  3. DAKLINZA [Suspect]
     Active Substance: DACLATASVIR
     Indication: HEPATITIS C

REACTIONS (1)
  - Headache [None]

NARRATIVE: CASE EVENT DATE: 20160929
